FAERS Safety Report 19734431 (Version 1)
Quarter: 2021Q3

REPORT INFORMATION
  Report Type: Spontaneous
  Country: NL (occurrence: NL)
  Receive Date: 20210823
  Receipt Date: 20210823
  Transmission Date: 20211014
  Serious: Yes (Hospitalization)
  Sender: FDA-Public Use
  Company Number: NL-MYLANLABS-2021M1053954

PATIENT
  Age: 65 Year
  Sex: Male
  Weight: 76 kg

DRUGS (14)
  1. LISINOPRIL. [Concomitant]
     Active Substance: LISINOPRIL
     Dosage: TABLET, 2,5 MG (MILLIGRAM)
  2. CYANOCOBALAMINE [Concomitant]
     Active Substance: CYANOCOBALAMIN
     Dosage: TABLET, 1000 ?G (MICROGRAM)
  3. PANTOPRAZOLE [Suspect]
     Active Substance: PANTOPRAZOLE
     Indication: PROPHYLAXIS
     Dosage: 1DD1
     Dates: start: 20210204, end: 20210225
  4. CLOPIDOGREL [Concomitant]
     Active Substance: CLOPIDOGREL BISULFATE
     Dosage: TABLET, 75 MG (MILLIGRAM)
  5. NICOTINE. [Concomitant]
     Active Substance: NICOTINE
     Dosage: PLEISTER, 7 MG (MILLIGRAM) PER 24 UUR
  6. ACETYLSALICYLZUUR [Concomitant]
     Active Substance: ASPIRIN
     Dosage: TABLET, 80 MG (MILLIGRAM)
  7. NITROGLYCERINE [Concomitant]
     Active Substance: NITROGLYCERIN
     Dosage: SPRAY, 0,4 MG/DOSIS (MILLIGRAM PER DOSIS)
  8. METOPROLOL. [Concomitant]
     Active Substance: METOPROLOL
     Dosage: TABLET MET GEREGULEERDE AFGIFTE, 50 MG (MILLIGRAM)
  9. COLECALCIFEROL [Concomitant]
     Active Substance: CHOLECALCIFEROL
     Dosage: TABLET, 800 EENHEDEN
  10. BIMATOPROST. [Concomitant]
     Active Substance: BIMATOPROST
     Dosage: OOGDRUPPELS, 0,1 MG/ML (MILLIGRAM PER MILLILITER)
  11. ATORVASTATINE                      /01326101/ [Concomitant]
     Active Substance: ATORVASTATIN
     Dosage: TABLET, 80 MG (MILLIGRAM)
  12. PREGABALINE [Concomitant]
     Active Substance: PREGABALIN
     Dosage: CAPSULE, 75 MG (MILLIGRAM)
  13. GLICLAZIDE [Concomitant]
     Active Substance: GLICLAZIDE
     Dosage: TABLET MET GEREGULEERDE AFGIFTE, 80 MG (MILLIGRAM)
  14. DORZOLAMIDE AND TIMOLOL [Concomitant]
     Active Substance: DORZOLAMIDE\TIMOLOL
     Dosage: OOGDRUPPELS, 5/20 MG/ML (MILLIGRAM PER MILLILITER)

REACTIONS (3)
  - Hypokalaemia [Recovering/Resolving]
  - Hypocalcaemia [Recovering/Resolving]
  - Hypomagnesaemia [Recovering/Resolving]

NARRATIVE: CASE EVENT DATE: 20210224
